FAERS Safety Report 6420996-6 (Version None)
Quarter: 2009Q4

REPORT INFORMATION
  Report Type: 
  Country: None (occurrence: None)
  Receive Date: 20091028
  Receipt Date: 20091019
  Transmission Date: 20100525
  Serious: Yes (Hospitalization)
  Sender: FDA-Public Use
  Company Number: CLOF-1000741

PATIENT
  Sex: Female

DRUGS (1)
  1. CLOLAR [Suspect]
     Indication: LYMPHOMA

REACTIONS (3)
  - ELECTROLYTE IMBALANCE [None]
  - PANCYTOPENIA [None]
  - PYREXIA [None]
